FAERS Safety Report 7002596-2 (Version None)
Quarter: 2010Q3

REPORT INFORMATION
  Report Type: 
  Country: None (occurrence: None)
  Receive Date: 20100920
  Receipt Date: 20070911
  Transmission Date: 20110219
  Serious: Yes (Other)
  Sender: FDA-Public Use
  Company Number: US-ASTRAZENECA-2006UW07991

PATIENT
  Age: 580 Month
  Sex: Female
  Weight: 83.5 kg

DRUGS (20)
  1. SEROQUEL [Suspect]
     Indication: BIPOLAR DISORDER
     Dosage: 100MG, HALF TABLET AT NIGHT
     Route: 048
     Dates: start: 20050101
  2. SEROQUEL [Suspect]
     Indication: SCHIZOPHRENIA
     Dosage: 100MG, HALF TABLET AT NIGHT
     Route: 048
     Dates: start: 20050101
  3. SEROQUEL [Suspect]
     Indication: DEPRESSION
     Dosage: 100MG, HALF TABLET AT NIGHT
     Route: 048
     Dates: start: 20050101
  4. SEROQUEL [Suspect]
     Dosage: 100-200 MG
     Route: 048
     Dates: start: 20051201, end: 20060301
  5. SEROQUEL [Suspect]
     Dosage: 100-200 MG
     Route: 048
     Dates: start: 20051201, end: 20060301
  6. SEROQUEL [Suspect]
     Dosage: 100-200 MG
     Route: 048
     Dates: start: 20051201, end: 20060301
  7. GEODON [Concomitant]
     Dates: start: 20050101
  8. TRAZODONE HCL [Concomitant]
     Dates: start: 20040101, end: 20050101
  9. VALIUM [Concomitant]
     Indication: DEPRESSION
     Dates: start: 20040101
  10. VALIUM [Concomitant]
     Indication: ANXIETY
     Dates: start: 20040101
  11. VALIUM [Concomitant]
     Dates: start: 20040419
  12. VALIUM [Concomitant]
     Dates: start: 20040419
  13. NEXIUM [Concomitant]
     Route: 048
     Dates: start: 20060321
  14. NEXIUM [Concomitant]
     Route: 048
     Dates: start: 20050225
  15. GABAPENTIN [Concomitant]
     Dates: start: 20060321
  16. OXYCODONE AND ACETAMINOPHEN [Concomitant]
     Dosage: 5/325 TABLET
     Dates: start: 20060221
  17. AVANDIA [Concomitant]
     Route: 048
     Dates: start: 20060620
  18. PREVACID [Concomitant]
     Route: 048
     Dates: start: 20060620
  19. TRAZODONE HCL [Concomitant]
     Indication: ANXIETY
     Dates: start: 20040419
  20. TRAZODONE HCL [Concomitant]
     Indication: INSOMNIA
     Dates: start: 20040419

REACTIONS (8)
  - ABDOMINAL PAIN UPPER [None]
  - DIABETES MELLITUS [None]
  - DIABETES MELLITUS INADEQUATE CONTROL [None]
  - DIABETIC KETOACIDOSIS [None]
  - GASTROOESOPHAGEAL REFLUX DISEASE [None]
  - GLYCOSURIA [None]
  - PANCREATITIS [None]
  - TYPE 1 DIABETES MELLITUS [None]
